FAERS Safety Report 7462927-6 (Version None)
Quarter: 2011Q2

REPORT INFORMATION
  Report Type: 
  Country: None (occurrence: None)
  Receive Date: 20110506
  Receipt Date: 20110405
  Transmission Date: 20111010
  Serious: Yes (Hospitalization)
  Sender: FDA-Public Use
  Company Number: US-BAYER-201038137NA

PATIENT
  Age: 22 Year
  Sex: Female
  Weight: 136.5 kg

DRUGS (3)
  1. DROSPIRENONE AND ETHINYL ESTRADIOL [Suspect]
     Indication: PRODUCT USED FOR UNKNOWN INDICATION
     Dosage: UNK UNK, QD
     Route: 048
     Dates: start: 20040601, end: 20081201
  2. YASMIN [Suspect]
     Indication: PRODUCT USED FOR UNKNOWN INDICATION
     Dosage: UNK UNK, QD
     Route: 048
     Dates: start: 20040601, end: 20081201
  3. ZOLOFT [Concomitant]
     Dosage: 50 MG, UNK
     Dates: end: 20081229

REACTIONS (7)
  - DEEP VEIN THROMBOSIS [None]
  - CHEST PAIN [None]
  - DYSPNOEA [None]
  - FEAR [None]
  - PULMONARY EMBOLISM [None]
  - ANXIETY [None]
  - FATIGUE [None]
